FAERS Safety Report 8287519-0 (Version None)
Quarter: 2012Q2

REPORT INFORMATION
  Report Type: 
  Country: None (occurrence: None)
  Receive Date: 20120411
  Receipt Date: 20120328
  Transmission Date: 20120825
  Serious: Yes (Other)
  Sender: FDA-Public Use
  Company Number: FK201200956

PATIENT
  Age: 3 Year
  Sex: Male

DRUGS (2)
  1. MERCAPTOPURINE [Suspect]
     Indication: ACUTE LYMPHOCYTIC LEUKAEMIA
  2. METHOTREXATE [Suspect]
     Indication: ACUTE LYMPHOCYTIC LEUKAEMIA
     Dosage: 20 MG/M2, 1 IN 1 WK

REACTIONS (9)
  - CRYPTOSPORIDIOSIS INFECTION [None]
  - LYMPHOPENIA [None]
  - HAEMATEMESIS [None]
  - MALNUTRITION [None]
  - WEIGHT DECREASED [None]
  - DIARRHOEA [None]
  - DECREASED APPETITE [None]
  - CHOLANGITIS [None]
  - APATHY [None]
